FAERS Safety Report 8500692-1 (Version None)
Quarter: 2012Q3

REPORT INFORMATION
  Report Type: 
  Country: None (occurrence: None)
  Receive Date: 20120710
  Receipt Date: 20120706
  Transmission Date: 20120928
  Serious: Yes (Hospitalization, Other)
  Sender: FDA-Public Use
  Company Number: BR-ROCHE-1084998

PATIENT
  Sex: Female
  Weight: 68 kg

DRUGS (8)
  1. DIOVAN HCT [Concomitant]
     Indication: DIABETES MELLITUS
  2. PRESSAT [Concomitant]
  3. MABTHERA [Suspect]
     Indication: RHEUMATOID ARTHRITIS
  4. LEVOTHYROXINE SODIUM [Concomitant]
     Indication: THYROID DISORDER
  5. CRESTOR [Concomitant]
  6. NEXIUM [Concomitant]
     Indication: GASTRIC DISORDER
  7. METFORMIN HCL [Concomitant]
  8. METFORMIN HCL [Concomitant]

REACTIONS (4)
  - CARDIAC DISORDER [None]
  - CHEST PAIN [None]
  - MOBILITY DECREASED [None]
  - FATIGUE [None]
